FAERS Safety Report 5317674-3 (Version None)
Quarter: 2007Q2

REPORT INFORMATION
  Report Type: 
  Country: None (occurrence: None)
  Receive Date: 20070507
  Receipt Date: 20070425
  Transmission Date: 20071010
  Serious: Yes (Other)
  Sender: FDA-Public Use
  Company Number: PHEH2007US04363

PATIENT
  Sex: Male

DRUGS (11)
  1. ZELNORM [Suspect]
     Indication: CONSTIPATION
     Dosage: UNK, UNK
     Route: 048
  2. CLONIDINE [Concomitant]
  3. AVODART [Concomitant]
     Indication: PROSTATE EXAMINATION ABNORMAL
     Dosage: 0.5 MG, QD
     Dates: start: 20070401
  4. SIMVASTATIN [Concomitant]
     Indication: HYPERCHOLESTEROLAEMIA
     Dosage: 20 MG, QD
  5. RANITIDINE [Concomitant]
     Indication: GASTROINTESTINAL DISORDER
     Dosage: 150 MG, QD
     Dates: start: 20050101
  6. NIFEDEX [Concomitant]
     Indication: HYPERTENSION
     Dosage: 30 MG, QD
  7. PLAVIX [Concomitant]
     Indication: STENT PLACEMENT
     Dosage: 75 MG, QD
     Dates: start: 20060601
  8. HYOSCYAMINE SULFATE [Concomitant]
     Indication: GASTROINTESTINAL DISORDER
     Dosage: WITH MEALS
  9. UROXACIN [Concomitant]
     Indication: PROSTATE EXAMINATION ABNORMAL
     Dosage: 10 MG, QD
     Dates: start: 20070401
  10. ATENOLOL [Concomitant]
     Indication: HYPERTENSION
     Dosage: 1.5 TABLETS PER DAY
  11. ASPIRIN [Concomitant]
     Indication: STENT PLACEMENT
     Dosage: 325 MG, QD
     Dates: start: 20060601

REACTIONS (4)
  - ABDOMINAL DISTENSION [None]
  - CHEST PAIN [None]
  - DYSPNOEA [None]
  - STENT-GRAFT MALFUNCTION [None]
